FAERS Safety Report 9025453 (Version 3)
Quarter: 2014Q2

REPORT INFORMATION
  Report Type: Spontaneous
  Country: US (occurrence: US)
  Receive Date: 20130122
  Receipt Date: 20140514
  Transmission Date: 20141212
  Serious: Yes (Death, Hospitalization)
  Sender: FDA-Public Use
  Company Number: US-B.I. PHARMACEUTICALS,INC./RIDGEFIELD-2013-BI-00946BP

PATIENT
  Age: 63 Year
  Sex: Male
  Weight: 113.3 kg

DRUGS (20)
  1. PRADAXA [Suspect]
     Indication: ATRIAL FIBRILLATION
     Dosage: 300 MG
     Route: 065
     Dates: start: 20110811, end: 20110821
  2. PLAVIX [Concomitant]
     Route: 065
     Dates: start: 2004, end: 20110822
  3. ASPIRIN [Concomitant]
     Route: 065
     Dates: end: 20110822
  4. NEXIUM [Concomitant]
     Route: 065
     Dates: start: 2010
  5. METFORMIN [Concomitant]
     Route: 065
     Dates: start: 2010
  6. NIASPAN [Concomitant]
     Route: 065
     Dates: start: 2004
  7. CARVEDILOL [Concomitant]
     Route: 065
     Dates: start: 2010
  8. POTASSIUM [Concomitant]
     Route: 065
     Dates: start: 2011
  9. FUROSEMIDE [Concomitant]
     Route: 065
     Dates: start: 2011
  10. LORAZEPAM [Concomitant]
     Route: 065
     Dates: start: 2004
  11. HYDROCODONE [Concomitant]
     Route: 065
     Dates: start: 2007
  12. VYTORIN [Concomitant]
     Route: 065
     Dates: start: 2007
  13. SERTRALINE [Concomitant]
     Route: 065
     Dates: start: 2010
  14. LOSARTAN [Concomitant]
     Route: 065
     Dates: start: 2010
  15. RANEXA [Concomitant]
     Route: 065
     Dates: start: 2008
  16. ZINC [Concomitant]
     Route: 065
  17. FISH OIL [Concomitant]
     Route: 065
  18. IRON [Concomitant]
     Route: 065
  19. SEPTRA-DS [Concomitant]
     Route: 065
  20. SAW PALMETTO [Concomitant]
     Route: 065

REACTIONS (8)
  - Haemorrhagic stroke [Fatal]
  - Haemorrhage intracranial [Fatal]
  - Subarachnoid haemorrhage [Fatal]
  - Acute respiratory failure [Unknown]
  - Pneumonia aspiration [Unknown]
  - Sepsis [Unknown]
  - Renal failure acute [Unknown]
  - Coagulopathy [Unknown]
